FAERS Safety Report 15856023 (Version 2)
Quarter: 2020Q1

REPORT INFORMATION
  Report Type: Spontaneous
  Country: US (occurrence: US)
  Receive Date: 20190123
  Receipt Date: 20200320
  Transmission Date: 20200409
  Serious: Yes (Other)
  Sender: FDA-Public Use
  Company Number: US-BRISTOL-MYERS SQUIBB COMPANY-BMS-2019-004659

PATIENT
  Sex: Female

DRUGS (2)
  1. YERVOY [Suspect]
     Active Substance: IPILIMUMAB
     Indication: LIPOSARCOMA
     Dosage: 85 MG, EVERY 3 WEEKS
     Route: 042
  2. OPDIVO [Suspect]
     Active Substance: NIVOLUMAB
     Indication: LIPOSARCOMA
     Dosage: 255 MG, EVERY 3 WEEKS
     Route: 042

REACTIONS (2)
  - Intentional product use issue [Unknown]
  - Drug ineffective [Unknown]
